FAERS Safety Report 23163038 (Version 2)
Quarter: 2023Q4

REPORT INFORMATION
  Report Type: Spontaneous
  Country: AU (occurrence: AU)
  Receive Date: 20231109
  Receipt Date: 20231114
  Transmission Date: 20240110
  Serious: Yes (Hospitalization)
  Sender: FDA-Public Use
  Company Number: AU-UCBSA-2023052991

PATIENT
  Age: 20 Month
  Sex: Male

DRUGS (2)
  1. VIMPAT [Suspect]
     Active Substance: LACOSAMIDE
     Indication: Epilepsy
     Dosage: 10 MILLILITER, 2X/DAY (BID)
     Dates: start: 20231028
  2. VIMPAT [Suspect]
     Active Substance: LACOSAMIDE
     Dosage: 20 MILLILITER AS INSTRUCTED
     Dates: start: 202310

REACTIONS (3)
  - Accidental overdose [Unknown]
  - Product dispensing error [Unknown]
  - Off label use [Unknown]

NARRATIVE: CASE EVENT DATE: 20231001
